FAERS Safety Report 23446509 (Version 2)
Quarter: 2024Q1

REPORT INFORMATION
  Report Type: Spontaneous
  Country: FR (occurrence: None)
  Receive Date: 20240126
  Receipt Date: 20240212
  Transmission Date: 20240410
  Serious: Yes (Hospitalization, Other)
  Sender: FDA-Public Use
  Company Number: 2024A020620

PATIENT
  Age: 5 Month
  Sex: Male
  Weight: 6.7 kg

DRUGS (1)
  1. BEYFORTUS [Suspect]
     Active Substance: NIRSEVIMAB-ALIP
     Dosage: UNK
     Route: 003
     Dates: start: 20231026, end: 20231026

REACTIONS (4)
  - Pneumonia respiratory syncytial viral [Unknown]
  - Rhinovirus infection [Unknown]
  - Respiratory syncytial virus bronchiolitis [Unknown]
  - Incorrect route of product administration [Unknown]

NARRATIVE: CASE EVENT DATE: 20231026
